FAERS Safety Report 8414690-X (Version None)
Quarter: 2012Q2

REPORT INFORMATION
  Report Type: 
  Country: None (occurrence: None)
  Receive Date: 20120605
  Receipt Date: 20120531
  Transmission Date: 20120825
  Serious: Yes (Other)
  Sender: FDA-Public Use
  Company Number: US-MERCK-1205USA02376

PATIENT
  Age: 72 Year
  Sex: Female

DRUGS (5)
  1. LIPITOR [Concomitant]
     Route: 065
  2. CHOLECALCIFEROL [Concomitant]
     Route: 065
  3. FOSAMAX [Suspect]
     Indication: OSTEOPOROSIS
     Route: 048
     Dates: start: 20051012
  4. CARVEDILOL [Concomitant]
     Route: 065
  5. LISINOPRIL [Concomitant]
     Route: 065

REACTIONS (1)
  - CHRONIC LYMPHOCYTIC LEUKAEMIA [None]
